FAERS Safety Report 9663841 (Version 2)
Quarter: 2013Q4

REPORT INFORMATION
  Report Type: Report from Study
  Country: ES (occurrence: ES)
  Receive Date: 20131101
  Receipt Date: 20131101
  Transmission Date: 20140711
  Serious: Yes (Other)
  Sender: FDA-Public Use
  Company Number: ES-MPIJNJ-2007_02806

PATIENT
  Sex: 0

DRUGS (3)
  1. VELCADE [Suspect]
     Indication: PLASMA CELL MYELOMA
     Dosage: 2.41 MG, UNK
     Route: 042
     Dates: start: 20070522, end: 20070814
  2. THALIDOMIDE [Suspect]
     Indication: PLASMA CELL MYELOMA
     Dosage: 200.00 MG, UNK
     Route: 048
     Dates: start: 20070522, end: 20070816
  3. DEXAMETHASONE [Suspect]
     Indication: PLASMA CELL MYELOMA
     Dosage: 40.00 MG, UNK
     Route: 048
     Dates: start: 20070522, end: 20070816

REACTIONS (1)
  - Anosmia [Not Recovered/Not Resolved]
